FAERS Safety Report 5933582-9 (Version None)
Quarter: 2008Q4

REPORT INFORMATION
  Report Type: 
  Country: None (occurrence: None)
  Receive Date: 20081010
  Receipt Date: 20080625
  Transmission Date: 20090506
  Serious: Yes (Other)
  Sender: FDA-Public Use
  Company Number: WWISSUE-197

PATIENT
  Sex: Female

DRUGS (2)
  1. DICYCLOMINE [Suspect]
     Route: 048
     Dates: start: 20080605
  2. ASPIRIN [Concomitant]

REACTIONS (3)
  - DIARRHOEA [None]
  - DIZZINESS [None]
  - NAUSEA [None]
